FAERS Safety Report 22079499 (Version 2)
Quarter: 2023Q1

REPORT INFORMATION
  Report Type: Spontaneous
  Country: US (occurrence: None)
  Receive Date: 20230309
  Receipt Date: 20230321
  Transmission Date: 20230418
  Serious: Yes (Other)
  Sender: FDA-Public Use
  Company Number: 2023A052166

PATIENT
  Age: 22249 Day
  Sex: Male
  Weight: 109 kg

DRUGS (25)
  1. NEXIUM [Suspect]
     Active Substance: ESOMEPRAZOLE MAGNESIUM
     Route: 048
  2. PROPOFOL [Concomitant]
     Active Substance: PROPOFOL
  3. IOHEXOL [Concomitant]
     Active Substance: IOHEXOL
  4. PENICILLIN G [Concomitant]
     Active Substance: PENICILLIN G
  5. ZOFRAN [Concomitant]
     Active Substance: ONDANSETRON HYDROCHLORIDE
  6. MORPHINE [Concomitant]
     Active Substance: MORPHINE
  7. BENADRYL [Concomitant]
     Active Substance: DIPHENHYDRAMINE HYDROCHLORIDE
  8. LIPITOR [Concomitant]
     Active Substance: ATORVASTATIN CALCIUM
  9. VITAMINS [Concomitant]
     Active Substance: VITAMINS
  10. LEXAPRO [Concomitant]
     Active Substance: ESCITALOPRAM OXALATE
     Dosage: 1 TABLET BY MOUTH DAILY
  11. SUCRALFATE [Concomitant]
     Active Substance: SUCRALFATE
  12. VITAMIN B1 [Concomitant]
     Active Substance: THIAMINE HYDROCHLORIDE
  13. METOPROLOL SUCCINATE [Concomitant]
     Active Substance: METOPROLOL SUCCINATE
  14. REMERON [Concomitant]
     Active Substance: MIRTAZAPINE
  15. PRINZIDE [Concomitant]
     Active Substance: HYDROCHLOROTHIAZIDE\LISINOPRIL
  16. PROTONIX [Concomitant]
     Active Substance: PANTOPRAZOLE SODIUM
  17. MOTRIN [Concomitant]
     Active Substance: IBUPROFEN
  18. MAALOX ANTACID [Concomitant]
     Active Substance: ALUMINUM HYDROXIDE\DIMETHICONE\MAGNESIUM HYDROXIDE
  19. AMLODIPINE [Concomitant]
     Active Substance: AMLODIPINE BESYLATE
  20. TYLENOL [Concomitant]
     Active Substance: ACETAMINOPHEN
  21. HYDROXYZINE [Concomitant]
     Active Substance: HYDROXYZINE HYDROCHLORIDE
  22. LORAZEPAM [Concomitant]
     Active Substance: LORAZEPAM
  23. LYRICA [Concomitant]
     Active Substance: PREGABALIN
  24. ATENOLOL [Concomitant]
     Active Substance: ATENOLOL
  25. ZITHROMAX [Concomitant]
     Active Substance: AZITHROMYCIN DIHYDRATE

REACTIONS (4)
  - Neuroendocrine carcinoma [Unknown]
  - Gastrointestinal adenocarcinoma [Unknown]
  - Colon cancer [Unknown]
  - Carcinoid tumour of the stomach [Unknown]

NARRATIVE: CASE EVENT DATE: 20200604
